FAERS Safety Report 7349736-3 (Version None)
Quarter: 2011Q1

REPORT INFORMATION
  Report Type: 
  Country: None (occurrence: None)
  Receive Date: 20110314
  Receipt Date: 20110302
  Transmission Date: 20110831
  Serious: No
  Sender: FDA-Public Use
  Company Number: US-BAYER-2011-019650

PATIENT
  Sex: Female
  Weight: 61.224 kg

DRUGS (1)
  1. MIRENA [Suspect]
     Indication: CONTRACEPTION
     Dosage: 20 ?G, CONT
     Route: 015
     Dates: start: 20100201

REACTIONS (6)
  - NAUSEA [None]
  - AMENORRHOEA [None]
  - LOSS OF LIBIDO [None]
  - PREGNANCY WITH CONTRACEPTIVE DEVICE [None]
  - ABDOMINAL DISTENSION [None]
  - WEIGHT INCREASED [None]
